FAERS Safety Report 17369678 (Version 1)
Quarter: 2020Q1

REPORT INFORMATION
  Report Type: Spontaneous
  Country: US (occurrence: US)
  Receive Date: 20200205
  Receipt Date: 20200205
  Transmission Date: 20200409
  Serious: Yes (Other)
  Sender: FDA-Public Use
  Company Number: US-NOVEN PHARMACEUTICALS, INC.-US2020000077

PATIENT

DRUGS (1)
  1. DAYTRANA [Suspect]
     Active Substance: METHYLPHENIDATE
     Indication: PRODUCT USED FOR UNKNOWN INDICATION
     Dosage: 20 MG, UNKNOWN
     Route: 062

REACTIONS (10)
  - Agitation [Unknown]
  - Application site erythema [Not Recovered/Not Resolved]
  - Application site pain [Unknown]
  - Product administered at inappropriate site [Unknown]
  - Blood disorder [Unknown]
  - Off label use [Not Recovered/Not Resolved]
  - Brain injury [Unknown]
  - Psychotic disorder [Unknown]
  - Therapeutic product ineffective [Unknown]
  - Application site inflammation [Unknown]
